FAERS Safety Report 9961340 (Version 1)
Quarter: 2014Q1

REPORT INFORMATION
  Report Type: Spontaneous
  Country: US (occurrence: None)
  Receive Date: 20140127
  Receipt Date: 20140127
  Transmission Date: 20141002
  Serious: Yes (Other)
  Sender: FDA-Public Use
  Company Number: 1177524

PATIENT
  Age: 60 Year
  Sex: Female
  Weight: 89 kg

DRUGS (6)
  1. ACTIVASE [Suspect]
     Indication: ISCHAEMIC STROKE
     Dosage: (81 MG, ONCE), INTRAVNEOUS (NOT OTHERWISE SPECIFIED) ?
     Route: 042
     Dates: start: 20121006, end: 20121006
  2. ELAVIL (AMITRIPTYLINE HYDROCHLORIDE) [Concomitant]
  3. MONOPRIL (FOSINOPRIL SODIUM) [Concomitant]
  4. GLUCOTROL (GLIPIZIDE) [Concomitant]
  5. ACTOS (PIOGLITAZONE HYDROCHLORIDE) [Concomitant]
  6. IBUPROFEN (IBUPROFEN) [Concomitant]

REACTIONS (1)
  - Angioedema [None]
